FAERS Safety Report 6806884-1 (Version None)
Quarter: 2010Q2

REPORT INFORMATION
  Report Type: 
  Country: None (occurrence: None)
  Receive Date: 20100629
  Receipt Date: 20080606
  Transmission Date: 20101027
  Serious: Yes (Other)
  Sender: FDA-Public Use
  Company Number: US-PFIZER INC-2008031136

PATIENT
  Sex: Female
  Weight: 87.54 kg

DRUGS (13)
  1. TIKOSYN [Suspect]
     Indication: ATRIAL FIBRILLATION
     Route: 048
     Dates: start: 20080302
  2. DIGOXIN [Concomitant]
  3. FUROSEMIDE [Concomitant]
  4. HYDROXYZINE [Concomitant]
  5. LABETALOL HCL [Concomitant]
  6. SYNTHROID [Concomitant]
  7. COZAAR [Concomitant]
  8. AMLODIPINE [Concomitant]
  9. CRESTOR [Concomitant]
  10. ASPIRIN [Concomitant]
  11. TRAMADOL HCL [Concomitant]
  12. NITROGLYCERIN [Concomitant]
  13. SOTALOL [Concomitant]

REACTIONS (5)
  - BLOOD PRESSURE INCREASED [None]
  - FLUID RETENTION [None]
  - HEADACHE [None]
  - HEART RATE INCREASED [None]
  - OEDEMA PERIPHERAL [None]
